FAERS Safety Report 13560140 (Version 3)
Quarter: 2018Q2

REPORT INFORMATION
  Report Type: Spontaneous
  Country: US (occurrence: US)
  Receive Date: 20170518
  Receipt Date: 20180504
  Transmission Date: 20180711
  Serious: No
  Sender: FDA-Public Use
  Company Number: US-PFIZER INC-2017212804

PATIENT
  Age: 80 Year
  Sex: Female
  Weight: 61.23 kg

DRUGS (12)
  1. LASIX [Concomitant]
     Active Substance: FUROSEMIDE
     Indication: PERIPHERAL SWELLING
     Dosage: 40 MG, 1X/DAY
     Route: 048
     Dates: start: 20170425
  2. VITAMIN C [Concomitant]
     Active Substance: ASCORBIC ACID
     Dosage: 500 MG, 2X/DAY
     Route: 048
     Dates: start: 20170427
  3. HIPREX [Concomitant]
     Active Substance: METHENAMINE HIPPURATE
     Dosage: 1 MG, 2X/DAY
     Route: 048
     Dates: start: 20170427
  4. XANAX [Concomitant]
     Active Substance: ALPRAZOLAM
     Indication: ANXIETY
     Dosage: 0.25 MG TABLET AT BEDTIME BY MOUTH
     Route: 048
     Dates: start: 20170310
  5. AMBIEN [Concomitant]
     Active Substance: ZOLPIDEM TARTRATE
     Indication: SLEEP DISORDER
     Dosage: 5 MG TABLET BY MOUTH AT BEDTIME
     Route: 048
     Dates: start: 20170310
  6. POTASSIUM [Concomitant]
     Active Substance: POTASSIUM
     Indication: BLOOD POTASSIUM DECREASED
     Dosage: 20 MEQ, 1X/DAY
     Route: 048
     Dates: start: 20170425
  7. PREMARIN [Suspect]
     Active Substance: ESTROGENS, CONJUGATED
     Indication: PROPHYLAXIS URINARY TRACT INFECTION
     Dosage: 0.5 G, 2X/WEEK, INSERT INTO VAGINA
     Route: 067
     Dates: start: 20170428, end: 20170512
  8. WELLBUTRIN [Concomitant]
     Active Substance: BUPROPION HYDROCHLORIDE
     Indication: BIPOLAR DISORDER
     Dosage: 150 MG, 1 TABLET BY MOUTH DAILY
     Route: 048
     Dates: start: 20170318
  9. PROTONIX [Concomitant]
     Active Substance: PANTOPRAZOLE SODIUM
     Indication: IRRITABLE BOWEL SYNDROME
     Dosage: 40 MG, 1X/DAY
     Route: 048
     Dates: start: 20170414
  10. ASPIRIN. [Concomitant]
     Active Substance: ASPIRIN
     Indication: CARDIOVASCULAR EVENT PROPHYLAXIS
     Dosage: 81 MG, DAILY
     Route: 048
  11. WELLBUTRIN [Concomitant]
     Active Substance: BUPROPION HYDROCHLORIDE
     Dosage: UNK
     Dates: start: 20170318
  12. CLOBETASOL [Concomitant]
     Active Substance: CLOBETASOL
     Indication: PROPHYLAXIS URINARY TRACT INFECTION
     Dosage: UNK, AS NEEDED (0.05 % OINTMENT; PUT IT IN AREA BETWEEN VAGINA AND RECTUM ONCE A WEEK)
     Dates: start: 20170427

REACTIONS (5)
  - Contraindicated product administered [Unknown]
  - Pelvic pain [Unknown]
  - Product use in unapproved indication [Unknown]
  - Vulvovaginal pain [Recovered/Resolved]
  - Vulvovaginal burning sensation [Recovered/Resolved]

NARRATIVE: CASE EVENT DATE: 20170428
